FAERS Safety Report 16211383 (Version 2)
Quarter: 2019Q2

REPORT INFORMATION
  Report Type: Spontaneous
  Country: IN (occurrence: IN)
  Receive Date: 20190418
  Receipt Date: 20190430
  Transmission Date: 20190711
  Serious: Yes (Death)
  Sender: FDA-Public Use
  Company Number: IN-ROCHE-2305646

PATIENT
  Age: 47 Year
  Sex: Female

DRUGS (1)
  1. BEVACIZUMAB. [Suspect]
     Active Substance: BEVACIZUMAB
     Indication: OVARIAN CANCER METASTATIC
     Route: 042
     Dates: start: 20180830

REACTIONS (1)
  - Death [Fatal]

NARRATIVE: CASE EVENT DATE: 20190314
